FAERS Safety Report 4445580-5 (Version None)
Quarter: 2004Q3

REPORT INFORMATION
  Report Type: 
  Country: None (occurrence: None)
  Receive Date: 20040802
  Receipt Date: 20040528
  Transmission Date: 20050211
  Serious: No
  Sender: FDA-Public Use
  Company Number: 2004-116948-NL

PATIENT
  Age: 29 Year
  Sex: Female
  Weight: 63.3 kg

DRUGS (1)
  1. NUVARING [Suspect]
     Indication: CONTRACEPTION
     Dates: start: 20040401

REACTIONS (1)
  - VAGINAL MYCOSIS [None]
